FAERS Safety Report 11976010 (Version 1)
Quarter: 2016Q1

REPORT INFORMATION
  Report Type: Spontaneous
  Country: US (occurrence: None)
  Receive Date: 20160128
  Receipt Date: 20160128
  Transmission Date: 20160526
  Serious: Yes (Death)
  Sender: FDA-Public Use
  Company Number: None

PATIENT
  Age: 80 Year
  Sex: Female

DRUGS (1)
  1. OPDIVO [Suspect]
     Active Substance: NIVOLUMAB
     Indication: LUNG NEOPLASM MALIGNANT
     Dosage: INFUSE 200 MG  ONCE EVERY 2 WEEKS IV
     Route: 042
     Dates: start: 201508, end: 201601

REACTIONS (1)
  - Death [None]

NARRATIVE: CASE EVENT DATE: 20160105
